FAERS Safety Report 20632472 (Version 1)
Quarter: 2022Q1

REPORT INFORMATION
  Report Type: Spontaneous
  Country: US (occurrence: None)
  Receive Date: 20220324
  Receipt Date: 20220324
  Transmission Date: 20220423
  Serious: No
  Sender: FDA-Public Use
  Company Number: None

PATIENT

DRUGS (2)
  1. SUCRALFATE [Suspect]
     Active Substance: SUCRALFATE
     Dosage: OTHER STRENGTH : 1 G/10 ML;?
     Route: 048
  2. LEVETIRACETAM [Suspect]
     Active Substance: LEVETIRACETAM
     Route: 048

REACTIONS (1)
  - Product packaging confusion [None]
